FAERS Safety Report 8531577-2 (Version None)
Quarter: 2012Q3

REPORT INFORMATION
  Report Type: 
  Country: None (occurrence: None)
  Receive Date: 20120723
  Receipt Date: 20120713
  Transmission Date: 20120928
  Serious: Yes (Death, Hospitalization, Other)
  Sender: FDA-Public Use
  Company Number: BR-JNJFOC-20120606182

PATIENT
  Age: 74 Year
  Sex: Male
  Weight: 70 kg

DRUGS (2)
  1. PREDNISONE [Concomitant]
     Indication: PROSTATE CANCER
     Route: 065
     Dates: start: 20120401
  2. ZYTIGA [Suspect]
     Indication: PROSTATE CANCER METASTATIC
     Route: 048
     Dates: start: 20120401, end: 20120101

REACTIONS (5)
  - FATIGUE [None]
  - TRANSAMINASES INCREASED [None]
  - BONE PAIN [None]
  - SEPSIS [None]
  - DISEASE PROGRESSION [None]
